FAERS Safety Report 16201126 (Version 1)
Quarter: 2019Q2

REPORT INFORMATION
  Report Type: Spontaneous
  Country: US (occurrence: US)
  Receive Date: 20190416
  Receipt Date: 20190416
  Transmission Date: 20190711
  Serious: Yes (Hospitalization, Other)
  Sender: FDA-Public Use
  Company Number: US-ZYDUS-035801

PATIENT
  Age: 50 Year
  Sex: Female

DRUGS (2)
  1. METFORMIN [Suspect]
     Active Substance: METFORMIN HYDROCHLORIDE
     Indication: AFFECTIVE DISORDER
     Route: 048
  2. METFORMIN [Suspect]
     Active Substance: METFORMIN HYDROCHLORIDE
     Indication: WEIGHT DECREASED
     Route: 048

REACTIONS (24)
  - Influenza like illness [Recovering/Resolving]
  - Acute kidney injury [Recovering/Resolving]
  - Lactic acidosis [Recovering/Resolving]
  - Disorientation [Recovering/Resolving]
  - Confusional state [Recovering/Resolving]
  - Hypotension [Recovering/Resolving]
  - Pyrexia [Recovering/Resolving]
  - Respiratory disorder [Recovering/Resolving]
  - Cachexia [Recovering/Resolving]
  - Metabolic acidosis [Recovering/Resolving]
  - Drug abuse [Unknown]
  - Abdominal pain [Recovering/Resolving]
  - Hallucination, visual [Recovering/Resolving]
  - Hypothermia [Recovering/Resolving]
  - Toxicity to various agents [Unknown]
  - Cough [Recovering/Resolving]
  - Renal impairment [Recovering/Resolving]
  - Chills [Recovering/Resolving]
  - Shock [Recovering/Resolving]
  - Weight decreased [Recovered/Resolved]
  - Renal tubular necrosis [Recovering/Resolving]
  - Hepatic function abnormal [Recovering/Resolving]
  - Myalgia [Recovering/Resolving]
  - Asthenia [Recovering/Resolving]
